FAERS Safety Report 24331316 (Version 1)
Quarter: 2024Q3

REPORT INFORMATION
  Report Type: Spontaneous
  Country: CA (occurrence: CA)
  Receive Date: 20240918
  Receipt Date: 20240918
  Transmission Date: 20241016
  Serious: Yes (Other)
  Sender: SANDOZ
  Company Number: CA-SANDOZ-SDZ2024CA080686

PATIENT
  Age: 73 Year
  Sex: Male
  Weight: 65 kg

DRUGS (4)
  1. DENOSUMAB [Suspect]
     Active Substance: DENOSUMAB
     Indication: Product used for unknown indication
     Dosage: 1 EVERY 6 MONTHS
     Route: 058
  2. LUSPATERCEPT [Suspect]
     Active Substance: LUSPATERCEPT
     Indication: Myelodysplastic syndrome
     Dosage: 1.75 MG/KG, QW3
     Route: 058
  3. LUSPATERCEPT [Suspect]
     Active Substance: LUSPATERCEPT
     Dosage: 1.75 MG/KG, QW3
     Route: 058
  4. LUSPATERCEPT [Suspect]
     Active Substance: LUSPATERCEPT
     Dosage: 1.75 MG/KG, QW3
     Route: 058

REACTIONS (5)
  - Cataract [Recovering/Resolving]
  - Epigastric discomfort [Recovering/Resolving]
  - Malaise [Recovering/Resolving]
  - Weight increased [Recovering/Resolving]
  - Diarrhoea [Recovering/Resolving]
